FAERS Safety Report 20532712 (Version 2)
Quarter: 2022Q2

REPORT INFORMATION
  Report Type: Spontaneous
  Country: US (occurrence: US)
  Receive Date: 20220301
  Receipt Date: 20220513
  Transmission Date: 20220720
  Serious: No
  Sender: FDA-Public Use
  Company Number: US-MYLANLABS-2022M1011837

PATIENT
  Sex: Female
  Weight: 65.32 kg

DRUGS (1)
  1. TRIAMCINOLONE [Suspect]
     Active Substance: TRIAMCINOLONE
     Indication: Pruritus
     Dosage: 0.025 PERCENT (0.025 PERCENT 15 GRAMS IN EACH TUBE)
     Route: 061
     Dates: start: 20210604, end: 202110

REACTIONS (1)
  - Drug ineffective [Unknown]
